FAERS Safety Report 9847390 (Version 2)
Quarter: 2014Q1

REPORT INFORMATION
  Report Type: Spontaneous
  Country: US (occurrence: US)
  Receive Date: 20140127
  Receipt Date: 20140127
  Transmission Date: 20141002
  Serious: Yes (Hospitalization, Other)
  Sender: FDA-Public Use
  Company Number: US-RB-058052-13

PATIENT
  Age: 58 Year
  Sex: Female

DRUGS (3)
  1. SUBOXONE FILM [Suspect]
     Dosage: SUBOXONE FILM; DOSING REGIMEN: 2 FILMS DAILY
     Route: 065
  2. SUBOXONE FILM [Suspect]
     Dosage: SUBOXONE FILM; DOSING REGIMEN: 1,5 FILMS DAILY
     Route: 065
  3. SUBOXONE FILM [Suspect]
     Indication: PRODUCT USED FOR UNKNOWN INDICATION
     Dosage: SUBOXONE FILM; DOSING REGIMEN: 2 FILMS DAILY
     Route: 065

REACTIONS (7)
  - Therapeutic response unexpected [Not Recovered/Not Resolved]
  - Pain [Not Recovered/Not Resolved]
  - Malaise [Recovered/Resolved]
  - Wrong technique in drug usage process [Recovered/Resolved]
  - Abdominal discomfort [Not Recovered/Not Resolved]
  - Chills [Not Recovered/Not Resolved]
  - Diabetic neuropathy [Not Recovered/Not Resolved]
